FAERS Safety Report 16969009 (Version 3)
Quarter: 2020Q1

REPORT INFORMATION
  Report Type: Report from Study
  Country: None (occurrence: JP)
  Receive Date: 20191029
  Receipt Date: 20200118
  Transmission Date: 20200409
  Serious: Yes (Death)
  Sender: FDA-Public Use
  Company Number: JP-ABBVIE-19P-087-2980546-00

PATIENT
  Age: 63 Year
  Sex: Male
  Weight: 71.3 kg

DRUGS (2)
  1. SYMBICORT [Concomitant]
     Active Substance: BUDESONIDE\FORMOTEROL FUMARATE DIHYDRATE
     Indication: PRODUCT USED FOR UNKNOWN INDICATION
     Dosage: UNK UNK, QD
     Route: 065
  2. LEUPLIN [Suspect]
     Active Substance: LEUPROLIDE ACETATE
     Indication: BULBOSPINAL MUSCULAR ATROPHY CONGENITAL
     Route: 058
     Dates: start: 20180717, end: 20190611

REACTIONS (2)
  - Completed suicide [Fatal]
  - Gas poisoning [Fatal]

NARRATIVE: CASE EVENT DATE: 20191014
